FAERS Safety Report 17051048 (Version 2)
Quarter: 2019Q4

REPORT INFORMATION
  Report Type: Spontaneous
  Country: US (occurrence: US)
  Receive Date: 20191120
  Receipt Date: 20191122
  Transmission Date: 20200122
  Serious: Yes (Death)
  Sender: FDA-Public Use
  Company Number: US-ROCHE-2479540

PATIENT
  Age: 78 Year
  Sex: Male

DRUGS (2)
  1. ZELBORAF [Suspect]
     Active Substance: VEMURAFENIB
     Indication: BREAST CANCER
     Dosage: ONGOING: UNKNOWN
     Route: 048
     Dates: start: 20190709
  2. COTELLIC [Suspect]
     Active Substance: COBIMETINIB
     Indication: BREAST CANCER
     Dosage: ONGOING: UNKNOWN
     Route: 048
     Dates: start: 20190709

REACTIONS (1)
  - Death [Fatal]

NARRATIVE: CASE EVENT DATE: 20191106
